FAERS Safety Report 4354168-6 (Version None)
Quarter: 2004Q2

REPORT INFORMATION
  Report Type: 
  Country: None (occurrence: None)
  Receive Date: 20040506
  Receipt Date: 20040428
  Transmission Date: 20050107
  Serious: Yes (Death)
  Sender: FDA-Public Use
  Company Number: PHNU2004DE01661

PATIENT
  Sex: Female

DRUGS (2)
  1. TRILEPTAL [Suspect]
     Indication: EPILEPSY
     Dosage: 300 MG, TID
     Route: 048
     Dates: start: 20020901
  2. TOPAMAX [Concomitant]
     Dosage: 50 MG, BID
     Dates: start: 20000701

REACTIONS (4)
  - CONVULSION [None]
  - GRAND MAL CONVULSION [None]
  - HAEMOPTYSIS [None]
  - RESPIRATORY TRACT INFECTION [None]
